FAERS Safety Report 21000036 (Version 2)
Quarter: 2022Q3

REPORT INFORMATION
  Report Type: Spontaneous
  Country: PL (occurrence: PL)
  Receive Date: 20220623
  Receipt Date: 20220708
  Transmission Date: 20221027
  Serious: Yes (Hospitalization)
  Sender: FDA-Public Use
  Company Number: PL-TEVA-2022-PL-2047614

PATIENT
  Age: 32 Year
  Sex: Male

DRUGS (2)
  1. FLUTICASONE PROPIONATE [Suspect]
     Active Substance: FLUTICASONE PROPIONATE
     Indication: Asthma
     Dosage: INITIALLY 150- 250 MICROG/DAY, LATER INCREASED TO 1000 MICROG
     Route: 055
  2. FORMOTEROL [Concomitant]
     Active Substance: FORMOTEROL
     Indication: Asthma
     Route: 065

REACTIONS (2)
  - Sjogren^s syndrome [Recovering/Resolving]
  - Obstructive sleep apnoea syndrome [Unknown]
